FAERS Safety Report 6232678-4 (Version None)
Quarter: 2009Q2

REPORT INFORMATION
  Report Type: 
  Country: None (occurrence: None)
  Receive Date: 20090615
  Receipt Date: 20090609
  Transmission Date: 20091009
  Serious: Yes (Hospitalization)
  Sender: FDA-Public Use
  Company Number: WAES 0904USA00321

PATIENT
  Age: 68 Year
  Weight: 94.8018 kg

DRUGS (4)
  1. COZAAR [Suspect]
     Indication: HYPERTENSION
     Dosage: 50 MG/DAILY/PO
     Route: 048
     Dates: start: 20081114, end: 20090308
  2. BLINDED THERAPY UNK [Suspect]
     Dosage: 1 DOSE/PO
     Route: 048
  3. CRESTOR [Concomitant]
  4. ASPIRIN [Concomitant]

REACTIONS (12)
  - ANGINA UNSTABLE [None]
  - ARTERIOSCLEROSIS CORONARY ARTERY [None]
  - ARTHRALGIA [None]
  - BLOOD PRESSURE SYSTOLIC INCREASED [None]
  - CORONARY ARTERY STENOSIS [None]
  - DYSPNOEA [None]
  - MYODESOPSIA [None]
  - PAIN IN EXTREMITY [None]
  - SINUS ARRHYTHMIA [None]
  - SINUS BRADYCARDIA [None]
  - VENTRICULAR EXTRASYSTOLES [None]
  - VISUAL FIELD DEFECT [None]
